FAERS Safety Report 9866942 (Version 1)
Quarter: 2014Q1

REPORT INFORMATION
  Report Type: Spontaneous
  Country: US (occurrence: US)
  Receive Date: 20140204
  Receipt Date: 20140204
  Transmission Date: 20141002
  Serious: No
  Sender: FDA-Public Use
  Company Number: US-PFIZER INC-2014030671

PATIENT
  Sex: Male

DRUGS (1)
  1. CELEBREX [Suspect]
     Dosage: 200 MG (1 PILL), 1X/DAY

REACTIONS (2)
  - Circumstance or information capable of leading to medication error [Unknown]
  - Abdominal discomfort [Unknown]
